FAERS Safety Report 18695384 (Version 1)
Quarter: 2021Q1

REPORT INFORMATION
  Report Type: Spontaneous
  Country: FR (occurrence: FR)
  Receive Date: 20210104
  Receipt Date: 20210104
  Transmission Date: 20210419
  Serious: Yes (Hospitalization, Other)
  Sender: FDA-Public Use
  Company Number: FR-SA-2020SA374331

PATIENT

DRUGS (2)
  1. LOVENOX [Suspect]
     Active Substance: ENOXAPARIN SODIUM
     Indication: THROMBOSIS PROPHYLAXIS
     Route: 058
     Dates: end: 20201206
  2. ORGARAN [Suspect]
     Active Substance: DANAPAROID SODIUM
     Indication: THROMBOSIS PROPHYLAXIS
     Dosage: 1 DF
     Route: 051
     Dates: start: 20201206, end: 20201206

REACTIONS (2)
  - Heparin-induced thrombocytopenia [Recovering/Resolving]
  - Therapeutic product cross-reactivity [Recovering/Resolving]

NARRATIVE: CASE EVENT DATE: 20201207
